FAERS Safety Report 25520330 (Version 2)
Quarter: 2025Q3

REPORT INFORMATION
  Report Type: Spontaneous
  Country: US (occurrence: US)
  Receive Date: 20250704
  Receipt Date: 20250906
  Transmission Date: 20251020
  Serious: Yes (Other)
  Sender: ALEXION PHARMACEUTICALS
  Company Number: US-AstraZeneca-CH-00901163AP

PATIENT
  Sex: Female

DRUGS (1)
  1. BREZTRI [Suspect]
     Active Substance: BUDESONIDE\FORMOTEROL\GLYCOPYRROLATE
     Route: 065

REACTIONS (8)
  - Device defective [Not Recovered/Not Resolved]
  - Underdose [Not Recovered/Not Resolved]
  - Bronchiectasis [Unknown]
  - Asthma [Unknown]
  - Bronchitis [Unknown]
  - Irritability [Unknown]
  - Drug dose omission by device [Unknown]
  - Device use issue [Not Recovered/Not Resolved]
